FAERS Safety Report 25013921 (Version 4)
Quarter: 2025Q2

REPORT INFORMATION
  Report Type: Spontaneous
  Country: FI (occurrence: FI)
  Receive Date: 20250226
  Receipt Date: 20250429
  Transmission Date: 20250716
  Serious: Yes (Other)
  Sender: ELI LILLY AND COMPANY
  Company Number: FI-ELI_LILLY_AND_COMPANY-FI202502013616

PATIENT
  Age: 40 Year
  Sex: Female

DRUGS (5)
  1. EMGALITY [Suspect]
     Active Substance: GALCANEZUMAB-GNLM
     Indication: Migraine
     Route: 065
     Dates: start: 2024
  2. DROSPIRENONE [Concomitant]
     Active Substance: DROSPIRENONE
     Indication: Product used for unknown indication
     Route: 065
  3. AMITRIPTYLINE HYDROCHLORIDE [Concomitant]
     Active Substance: AMITRIPTYLINE HYDROCHLORIDE
     Indication: Product used for unknown indication
     Route: 065
     Dates: end: 202406
  4. MIRANAX [NAPROXEN SODIUM] [Concomitant]
     Indication: Migraine
     Route: 065
  5. PANADOL [Concomitant]
     Active Substance: ACETAMINOPHEN
     Indication: Product used for unknown indication
     Route: 065

REACTIONS (13)
  - Burnout syndrome [Not Recovered/Not Resolved]
  - Abdominal pain upper [Unknown]
  - Pain [Unknown]
  - Movement disorder [Unknown]
  - Arthralgia [Unknown]
  - Myalgia [Unknown]
  - Fibromyalgia [Unknown]
  - Fatigue [Unknown]
  - Irritability [Unknown]
  - Back pain [Unknown]
  - Muscle spasms [Unknown]
  - Asthenia [Unknown]
  - Neuralgia [Unknown]

NARRATIVE: CASE EVENT DATE: 20250101
